FAERS Safety Report 8747839 (Version 2)
Quarter: 2013Q4

REPORT INFORMATION
  Report Type: Spontaneous
  Country: DK (occurrence: DK)
  Receive Date: 20120827
  Receipt Date: 20131031
  Transmission Date: 20140711
  Serious: Yes (Hospitalization)
  Sender: FDA-Public Use
  Company Number: DK-009507513-1208DNK010013

PATIENT
  Age: 62 Year
  Sex: Male

DRUGS (12)
  1. INVANZ [Suspect]
     Indication: PNEUMONIA
     Dosage: STYRKE: 1 G/DOSIS
     Route: 042
     Dates: start: 20120707, end: 20120716
  2. CIPROFLOXACIN [Suspect]
     Indication: PNEUMONIA
     Dosage: STYRKE: 2MG/ML
     Route: 042
     Dates: start: 20120708, end: 20120716
  3. FELODIPINE [Concomitant]
  4. GLICLAZIDE [Concomitant]
  5. SIMVASTATIN [Concomitant]
  6. SEROQUEL [Concomitant]
  7. CORDARONE [Concomitant]
  8. INNOHEP [Concomitant]
  9. NOVORAPID [Concomitant]
  10. OXAZEPAM [Concomitant]
  11. PAMOL [Concomitant]
  12. LAKTULOSE MEDIC [Concomitant]

REACTIONS (1)
  - Thrombocytosis [Unknown]
